FAERS Safety Report 8426113-5 (Version None)
Quarter: 2012Q2

REPORT INFORMATION
  Report Type: 
  Country: None (occurrence: None)
  Receive Date: 20120323
  Receipt Date: 20110808
  Transmission Date: 20120825
  Serious: Yes (Hospitalization, Disabling)
  Sender: FDA-Public Use
  Company Number: 163-21880-11043054

PATIENT
  Age: 84 Year
  Sex: Male

DRUGS (8)
  1. REVLIMID [Suspect]
     Indication: MYELODYSPLASTIC SYNDROME
     Dosage: 10 MG, QD X 21 DAYS, OFF 7 DAYS, PO
     Route: 048
     Dates: start: 20101019, end: 20110414
  2. CARDURA (DOXAZOSIN MESILATE)(UNKNOWN) [Concomitant]
  3. FOLBIC (HEPAGRISEVIT FORTE-N TABLET)(TABLETS) [Concomitant]
  4. DIGITEK (DIGOXIN)(UNKNOWN) [Concomitant]
  5. METHADONE HCL [Concomitant]
  6. METOPROLOL TARTRATE [Concomitant]
  7. PREDNISONE (PREDNISONE)(UNKNOWN) [Concomitant]
  8. METHADONE HCL [Concomitant]

REACTIONS (3)
  - PLATELET COUNT DECREASED [None]
  - RASH [None]
  - HAEMORRHAGE [None]
